FAERS Safety Report 8964104 (Version 1)
Quarter: 2012Q4

REPORT INFORMATION
  Report Type: 
  Country: FR (occurrence: FR)
  Receive Date: 20121213
  Receipt Date: 20121213
  Transmission Date: 20130627
  Serious: Yes (Other)
  Sender: FDA-Public Use
  Company Number: FR-GLAXOSMITHKLINE-B0849554A

PATIENT
  Age: 80 Year
  Sex: Female

DRUGS (8)
  1. AZANTAC [Suspect]
     Indication: PREMEDICATION
     Dosage: 50MG Single dose
     Route: 042
     Dates: start: 20120823, end: 20120823
  2. ONDANSETRON [Suspect]
     Indication: PREMEDICATION
     Dosage: 8MG Single dose
     Route: 042
     Dates: start: 20120823, end: 20120823
  3. CARBOPLATINE [Suspect]
     Indication: BREAST CANCER
     Dosage: 130MG Single dose
     Route: 045
     Dates: start: 20120823, end: 20120823
  4. PACLITAXEL [Suspect]
     Indication: BREAST CANCER
     Dosage: 150MG Single dose
     Route: 042
     Dates: start: 20120823, end: 20120823
  5. BEVACIZUMAB [Suspect]
     Indication: BREAST CANCER
     Dosage: 850MG Single dose
     Route: 042
     Dates: start: 20120823, end: 20120823
  6. DEXAMETHASONE [Suspect]
     Indication: PREMEDICATION
     Dosage: 20MG Single dose
     Route: 042
     Dates: start: 20120823, end: 20120823
  7. POLARAMINE [Suspect]
     Indication: PREMEDICATION
     Route: 042
     Dates: start: 20120823, end: 20120823
  8. HYDROXYZINE [Suspect]
     Indication: PREMEDICATION
     Dosage: 50MG Single dose
     Route: 042
     Dates: start: 20120823, end: 20120823

REACTIONS (6)
  - Hypotension [Recovered/Resolved]
  - Face oedema [Recovered/Resolved]
  - Diarrhoea [Recovered/Resolved]
  - Malaise [Recovered/Resolved]
  - Feeling hot [Recovered/Resolved]
  - Paraesthesia [Recovered/Resolved]
